FAERS Safety Report 8516577-0 (Version None)
Quarter: 2012Q3

REPORT INFORMATION
  Report Type: 
  Country: None (occurrence: None)
  Receive Date: 20120718
  Receipt Date: 20120712
  Transmission Date: 20120928
  Serious: Yes (Other)
  Sender: FDA-Public Use
  Company Number: US-BAYER-2012-070331

PATIENT
  Age: 21 Year
  Sex: Female

DRUGS (1)
  1. MIRENA [Suspect]
     Indication: CONTRACEPTION
     Dosage: 20 MCG/24HR, CONT
     Route: 015
     Dates: start: 20091201

REACTIONS (10)
  - FATIGUE [None]
  - VOMITING [None]
  - BACTERIAL INFECTION [None]
  - MEDICAL DEVICE DISCOMFORT [None]
  - METRORRHAGIA [None]
  - DEVICE EXPULSION [None]
  - MUSCLE SPASMS [None]
  - PROCEDURAL HAEMORRHAGE [None]
  - HEAT EXHAUSTION [None]
  - HEADACHE [None]
